FAERS Safety Report 21310287 (Version 3)
Quarter: 2022Q3

REPORT INFORMATION
  Report Type: Report from Study
  Country: BE (occurrence: None)
  Receive Date: 20220909
  Receipt Date: 20220927
  Transmission Date: 20221027
  Serious: Yes (Hospitalization)
  Sender: FDA-Public Use
  Company Number: BE-ROCHE-3175410

PATIENT
  Age: 64 Year
  Sex: Male
  Weight: 100.6 kg

DRUGS (14)
  1. INVESTIGATIONAL PRODUCT [Suspect]
     Active Substance: INVESTIGATIONAL PRODUCT
     Indication: Metastatic malignant melanoma
     Dosage: ON 29/AUG/2022 AT 12:50,HE RECEIVED MOST RECENT DOSE 6 MG OF RO7284755 IV PRIOR TO AE AND SAE. END D
     Route: 042
     Dates: start: 20220825
  2. ATEZOLIZUMAB [Suspect]
     Active Substance: ATEZOLIZUMAB
     Indication: Metastatic malignant melanoma
     Dosage: ON 25/AUG/2022,AT 1:36 PM HE RECEIVED MOST RECENT DOSE 1200 MG OF STUDY DRUG PRIOR TO AE AND SAE. EN
     Route: 041
     Dates: start: 20220825
  3. ACETAMINOPHEN [Concomitant]
     Active Substance: ACETAMINOPHEN
     Indication: Infusion related reaction
     Route: 048
     Dates: start: 20220825, end: 20220827
  4. ACETAMINOPHEN [Concomitant]
     Active Substance: ACETAMINOPHEN
     Route: 048
     Dates: start: 20220829, end: 20220829
  5. MOMETASONE FUROATE [Concomitant]
     Active Substance: MOMETASONE FUROATE
     Indication: Dermatitis acneiform
     Dosage: 1 FINGERTIP UNIT
     Route: 061
     Dates: start: 20220828, end: 20220830
  6. PANTOPRAZOLE SODIUM [Concomitant]
     Active Substance: PANTOPRAZOLE SODIUM
     Indication: Prophylaxis against gastrointestinal ulcer
     Route: 048
     Dates: start: 202009
  7. RIVAROXABAN [Concomitant]
     Active Substance: RIVAROXABAN
     Indication: Cardiovascular event prophylaxis
     Route: 048
     Dates: start: 2008
  8. PERINDOPRIL [Concomitant]
     Active Substance: PERINDOPRIL
     Indication: Hypertension
     Route: 048
  9. TESTOSTERONE [Concomitant]
     Active Substance: TESTOSTERONE
     Indication: Hypophysitis
     Route: 030
     Dates: start: 20210816
  10. OXYBUTYNIN CHLORIDE [Concomitant]
     Active Substance: OXYBUTYNIN CHLORIDE
     Indication: Pruritus
     Route: 048
  11. HYDROCORTISONE [Concomitant]
     Active Substance: HYDROCORTISONE
     Indication: Hypophysitis
     Route: 048
  12. LEVOTHYROXINE [Concomitant]
     Active Substance: LEVOTHYROXINE
     Indication: Hypothyroidism
     Route: 048
  13. TRAMADOL [Concomitant]
     Active Substance: TRAMADOL
     Route: 048
  14. VENLAFAXINE [Concomitant]
     Active Substance: VENLAFAXINE HYDROCHLORIDE
     Indication: Depression
     Route: 048
     Dates: start: 202101

REACTIONS (1)
  - Noninfective encephalitis [Recovered/Resolved]

NARRATIVE: CASE EVENT DATE: 20220905
